FAERS Safety Report 14826071 (Version 1)
Quarter: 2018Q2

REPORT INFORMATION
  Report Type: Spontaneous
  Country: EG (occurrence: EG)
  Receive Date: 20180430
  Receipt Date: 20180430
  Transmission Date: 20180711
  Serious: Yes (Other)
  Sender: FDA-Public Use
  Company Number: EG-NOVOPROD-596974

PATIENT
  Age: 49 Year
  Sex: Female
  Weight: 112 kg

DRUGS (1)
  1. MIXTARD 30 HM PENFILL [Suspect]
     Active Substance: INSULIN HUMAN
     Indication: DIABETES MELLITUS
     Dosage: 60 IU, QD (40-0-20)
     Route: 058

REACTIONS (2)
  - Blood glucose increased [Unknown]
  - Cataract [Recovered/Resolved]
